FAERS Safety Report 25634136 (Version 1)
Quarter: 2025Q3

REPORT INFORMATION
  Report Type: Report from Study
  Country: US (occurrence: US)
  Receive Date: 20250801
  Receipt Date: 20250801
  Transmission Date: 20251021
  Serious: Yes (Death, Hospitalization, Other)
  Sender: TEVA
  Company Number: US-TEVA-VS-3354892

PATIENT
  Age: 84 Year
  Sex: Female

DRUGS (1)
  1. BOSENTAN [Suspect]
     Active Substance: BOSENTAN
     Indication: Pulmonary arterial hypertension
     Route: 048
     Dates: start: 20190611, end: 20250701

REACTIONS (4)
  - Dyspnoea [Unknown]
  - Pneumonia [Unknown]
  - Death [Fatal]
  - Adrenal mass [Unknown]

NARRATIVE: CASE EVENT DATE: 20250501
